FAERS Safety Report 9702741 (Version 1)
Quarter: 2013Q4

REPORT INFORMATION
  Report Type: Report from Study
  Country: CA (occurrence: CA)
  Receive Date: 20131121
  Receipt Date: 20131121
  Transmission Date: 20140711
  Serious: Yes (Hospitalization)
  Sender: FDA-Public Use
  Company Number: CA-UCBSA-103627

PATIENT
  Sex: Female

DRUGS (3)
  1. CIMZIA [Suspect]
     Indication: RHEUMATOID ARTHRITIS
     Route: 058
     Dates: start: 20130121, end: 20131004
  2. SULFASALAZINE [Concomitant]
     Dates: start: 20120314
  3. PLAQUENIL [Concomitant]
     Dates: start: 20110919

REACTIONS (1)
  - Varicella [Recovered/Resolved]
